FAERS Safety Report 10022859 (Version 2)
Quarter: 2014Q1

REPORT INFORMATION
  Report Type: Spontaneous
  Country: US (occurrence: US)
  Receive Date: 20140319
  Receipt Date: 20140319
  Transmission Date: 20141002
  Serious: Yes (Disabling)
  Sender: FDA-Public Use
  Company Number: US-GE HEALTHCARE MEDICAL DIAGNOSTICS-OSCN-PR-0711S-0459

PATIENT
  Age: 45 Year
  Sex: Female

DRUGS (2)
  1. OMNISCAN [Suspect]
     Indication: CHEST DISCOMFORT
     Route: 042
     Dates: start: 20030725, end: 20030725
  2. OMNISCAN [Suspect]
     Route: 042
     Dates: start: 20031202, end: 20031202

REACTIONS (1)
  - Nephrogenic systemic fibrosis [Not Recovered/Not Resolved]
